FAERS Safety Report 7909363-3 (Version None)
Quarter: 2011Q4

REPORT INFORMATION
  Report Type: 
  Country: None (occurrence: None)
  Receive Date: 20111111
  Receipt Date: 20111101
  Transmission Date: 20120403
  Serious: Yes (Hospitalization)
  Sender: FDA-Public Use
  Company Number: US-BAYER-2011-034625

PATIENT
  Age: 24 Year
  Sex: Female
  Weight: 52.154 kg

DRUGS (4)
  1. YAZ [Suspect]
     Indication: ACNE
  2. ACETAMINOPHEN [Concomitant]
  3. MOTRIN [Concomitant]
  4. YAZ [Suspect]
     Indication: CONTRACEPTION
     Dosage: UNK
     Route: 048
     Dates: start: 20080101, end: 20100101

REACTIONS (2)
  - CHOLECYSTITIS [None]
  - CHOLELITHIASIS [None]
